FAERS Safety Report 22330215 (Version 1)
Quarter: 2023Q2

REPORT INFORMATION
  Report Type: Spontaneous
  Country: US (occurrence: None)
  Receive Date: 20230517
  Receipt Date: 20230517
  Transmission Date: 20230722
  Serious: No
  Sender: FDA-Public Use
  Company Number: US-ROCHE-3101358

PATIENT
  Sex: Female
  Weight: 87.168 kg

DRUGS (5)
  1. ACTEMRA [Suspect]
     Active Substance: TOCILIZUMAB
     Indication: Hypertrophic osteoarthropathy
     Dosage: INJECT 1 SYRINGE
     Route: 058
     Dates: start: 20220208
  2. AMLODIPINE [Concomitant]
     Active Substance: AMLODIPINE BESYLATE
     Route: 048
     Dates: start: 20210825
  3. ASPIRIN [Concomitant]
     Active Substance: ASPIRIN
     Route: 048
     Dates: start: 20210825
  4. FOLIC ACID [Concomitant]
     Active Substance: FOLIC ACID
     Route: 048
     Dates: start: 20210825
  5. LEUCOVORIN [Concomitant]
     Active Substance: LEUCOVORIN
     Route: 048
     Dates: start: 20210825

REACTIONS (2)
  - Product dose omission issue [Unknown]
  - No adverse event [Unknown]
